FAERS Safety Report 26116117 (Version 1)
Quarter: 2025Q4

REPORT INFORMATION
  Report Type: Spontaneous
  Country: EU (occurrence: EU)
  Receive Date: 20251203
  Receipt Date: 20251203
  Transmission Date: 20260118
  Serious: Yes (Other)
  Sender: TEVA
  Company Number: None

PATIENT
  Age: 6 Decade
  Sex: Male

DRUGS (3)
  1. OXALIPLATIN [Suspect]
     Active Substance: OXALIPLATIN
     Indication: Gastrointestinal carcinoma
     Dosage: PART OF A 6-MONTH CHEMOTHERAPY REGIMEN (FOLFOX)
     Route: 065
     Dates: start: 20191104, end: 20200406
  2. FLUOROURACIL [Suspect]
     Active Substance: FLUOROURACIL
     Indication: Gastrointestinal carcinoma
     Dosage: PART OF A 6-MONTH CHEMOTHERAPY REGIMEN (FOLFOX)
     Route: 065
     Dates: start: 20191104, end: 20200406
  3. LEUCOVORIN CALCIUM [Suspect]
     Active Substance: LEUCOVORIN CALCIUM
     Indication: Gastrointestinal carcinoma
     Dosage: PART OF A 6-MONTH CHEMOTHERAPY REGIMEN (FOLFOX)
     Route: 065
     Dates: start: 20191104, end: 20200406

REACTIONS (1)
  - Neuropathy peripheral [Unknown]

NARRATIVE: CASE EVENT DATE: 20191101
